FAERS Safety Report 5448851-9 (Version None)
Quarter: 2007Q3

REPORT INFORMATION
  Report Type: 
  Country: None (occurrence: None)
  Receive Date: 20070911
  Receipt Date: 20070720
  Transmission Date: 20080115
  Serious: No
  Sender: FDA-Public Use
  Company Number: US-BRISTOL-MYERS SQUIBB COMPANY-13853262

PATIENT
  Age: 45 Year
  Sex: Female
  Weight: 73 kg

DRUGS (7)
  1. EMSAM [Suspect]
     Indication: ANXIETY
     Route: 062
     Dates: start: 20061201
  2. EMSAM [Suspect]
     Indication: DEPRESSION
     Route: 062
     Dates: start: 20061201
  3. WELLBUTRIN [Suspect]
  4. AMBIEN CR [Concomitant]
  5. KLONOPIN [Concomitant]
  6. CYTOMEL [Concomitant]
  7. ALLERGEX [Concomitant]

REACTIONS (6)
  - CONSTIPATION [None]
  - FEELING JITTERY [None]
  - IRRITABILITY [None]
  - OEDEMA [None]
  - URINARY RETENTION [None]
  - WEIGHT INCREASED [None]
